FAERS Safety Report 17700243 (Version 3)
Quarter: 2021Q4

REPORT INFORMATION
  Report Type: Spontaneous
  Country: US (occurrence: US)
  Receive Date: 20200423
  Receipt Date: 20211019
  Transmission Date: 20220303
  Serious: Yes (Other)
  Sender: FDA-Public Use
  Company Number: 2020SE51762

PATIENT
  Age: 21724 Day
  Sex: Male
  Weight: 128.4 kg

DRUGS (53)
  1. NEXIUM [Suspect]
     Active Substance: ESOMEPRAZOLE MAGNESIUM
     Indication: Gastrooesophageal reflux disease
     Dosage: FOR VARIOUS DATES AND YEARS INCLUDING BUT NOT LIMITED TO 2007-2016
     Route: 048
  2. NEXIUM [Suspect]
     Active Substance: ESOMEPRAZOLE MAGNESIUM
     Indication: Gastrooesophageal reflux disease
     Route: 048
     Dates: start: 20130723, end: 20150318
  3. NEXIUM [Suspect]
     Active Substance: ESOMEPRAZOLE MAGNESIUM
     Indication: Gastrooesophageal reflux disease
     Route: 048
     Dates: start: 20071025, end: 20080405
  4. NEXIUM [Suspect]
     Active Substance: ESOMEPRAZOLE MAGNESIUM
     Indication: Gastrooesophageal reflux disease
     Route: 048
     Dates: start: 20120919, end: 20130620
  5. PREVACID [Suspect]
     Active Substance: LANSOPRAZOLE
     Indication: Gastrooesophageal reflux disease
     Route: 065
     Dates: start: 20080708
  6. PROTONIX [Suspect]
     Active Substance: PANTOPRAZOLE SODIUM
     Indication: Gastrooesophageal reflux disease
     Dosage: FOR VARIOUS DATES AND YEARS INCLUDING BUT NOT LIMITED TO 2007-2016
     Route: 065
  7. PROTONIX [Suspect]
     Active Substance: PANTOPRAZOLE SODIUM
     Indication: Gastrooesophageal reflux disease
     Dosage: GENERIC
     Route: 065
     Dates: start: 20160726, end: 20190119
  8. PROTONIX [Suspect]
     Active Substance: PANTOPRAZOLE SODIUM
     Indication: Gastrooesophageal reflux disease
     Route: 065
     Dates: start: 20070409, end: 20070917
  9. SPIRONOLACTONE [Concomitant]
     Active Substance: SPIRONOLACTONE
  10. ATENOLOL [Concomitant]
     Active Substance: ATENOLOL
  11. ACTOPLUS MET [Concomitant]
     Active Substance: METFORMIN HYDROCHLORIDE\PIOGLITAZONE HYDROCHLORIDE
  12. FLUCONAZOLE [Concomitant]
     Active Substance: FLUCONAZOLE
  13. CLONAZEPAM [Concomitant]
     Active Substance: CLONAZEPAM
  14. ALLOPURINOL [Concomitant]
     Active Substance: ALLOPURINOL
  15. GLIMEPIRIDE [Concomitant]
     Active Substance: GLIMEPIRIDE
  16. GENTAMICIN [Concomitant]
     Active Substance: GENTAMICIN
  17. ALTACE [Concomitant]
     Active Substance: RAMIPRIL
  18. VIAGRA [Concomitant]
     Active Substance: SILDENAFIL CITRATE
  19. AVANDAMET [Concomitant]
     Active Substance: METFORMIN HYDROCHLORIDE\ROSIGLITAZONE MALEATE
  20. FLUOXETINE [Concomitant]
     Active Substance: FLUOXETINE HYDROCHLORIDE
  21. CIPROFLOXACIN [Concomitant]
     Active Substance: CIPROFLOXACIN
  22. COUMADIN [Concomitant]
     Active Substance: WARFARIN SODIUM
  23. WARFARIN [Concomitant]
     Active Substance: WARFARIN
  24. PACERONE [Concomitant]
     Active Substance: AMIODARONE HYDROCHLORIDE
  25. ISOSORBIDE [Concomitant]
     Active Substance: ISOSORBIDE
  26. MAGNESIUM OXIDE [Concomitant]
     Active Substance: MAGNESIUM OXIDE
  27. DIGITEK [Concomitant]
     Active Substance: DIGOXIN
  28. FUROSEMIDE [Concomitant]
     Active Substance: FUROSEMIDE
  29. BUMETANIDE [Concomitant]
     Active Substance: BUMETANIDE
  30. FLOMAX [Concomitant]
     Active Substance: TAMSULOSIN HYDROCHLORIDE
  31. PRAVASTATIN [Concomitant]
     Active Substance: PRAVASTATIN
  32. CIALIS [Concomitant]
     Active Substance: TADALAFIL
  33. PREDNISOLONE [Concomitant]
     Active Substance: PREDNISOLONE
  34. TOBRAMYCIN [Concomitant]
     Active Substance: TOBRAMYCIN
  35. BENZONATATE [Concomitant]
     Active Substance: BENZONATATE
  36. CYCLOBENZAPRINE [Concomitant]
     Active Substance: CYCLOBENZAPRINE
  37. ALPRAZOLAM [Concomitant]
     Active Substance: ALPRAZOLAM
  38. DULOXETINE [Concomitant]
     Active Substance: DULOXETINE
  39. MUPIROCIN [Concomitant]
     Active Substance: MUPIROCIN
  40. VOLTAREN [Concomitant]
     Active Substance: DICLOFENAC SODIUM
  41. VENLAFAXINE [Concomitant]
     Active Substance: VENLAFAXINE HYDROCHLORIDE
  42. TRIAMCINOLONE [Concomitant]
     Active Substance: TRIAMCINOLONE
  43. CEFUROXIME [Concomitant]
     Active Substance: CEFUROXIME
  44. CITALOPRAM [Concomitant]
     Active Substance: CITALOPRAM HYDROBROMIDE
  45. ALLOPURINOL [Concomitant]
     Active Substance: ALLOPURINOL
  46. AMIODARONE [Concomitant]
     Active Substance: AMIODARONE
  47. NYSTATIN [Concomitant]
     Active Substance: NYSTATIN
  48. TAMSULOSIN [Concomitant]
     Active Substance: TAMSULOSIN
  49. SODIUM CHLORIDE [Concomitant]
     Active Substance: SODIUM CHLORIDE
  50. ENALAPRIL [Concomitant]
     Active Substance: ENALAPRIL
  51. AZITHROMYCIN ANHYDROUS [Concomitant]
     Active Substance: AZITHROMYCIN ANHYDROUS
  52. DEXAMETHASONE [Concomitant]
     Active Substance: DEXAMETHASONE
  53. METHOCARBAMOL [Concomitant]
     Active Substance: METHOCARBAMOL

REACTIONS (4)
  - Acute kidney injury [Not Recovered/Not Resolved]
  - Renal failure [Unknown]
  - Tubulointerstitial nephritis [Not Recovered/Not Resolved]
  - Rebound acid hypersecretion [Unknown]

NARRATIVE: CASE EVENT DATE: 20091008
